FAERS Safety Report 16868928 (Version 4)
Quarter: 2020Q1

REPORT INFORMATION
  Report Type: Report from Study
  Country: US (occurrence: US)
  Receive Date: 20190930
  Receipt Date: 20200306
  Transmission Date: 20200409
  Serious: Yes (Death, Hospitalization)
  Sender: FDA-Public Use
  Company Number: US-ACTELION-A-US2019-196062

PATIENT
  Sex: Female

DRUGS (15)
  1. OPSUMIT [Suspect]
     Active Substance: MACITENTAN
     Indication: PULMONARY ARTERIAL HYPERTENSION
     Dosage: 10 MG, QD
     Route: 048
     Dates: start: 20180217
  2. DIGOXIN. [Concomitant]
     Active Substance: DIGOXIN
  3. WARFARIN [Concomitant]
     Active Substance: WARFARIN
  4. FERROUS SULFATE. [Concomitant]
     Active Substance: FERROUS SULFATE
  5. PANTOPRAZOLE [Concomitant]
     Active Substance: PANTOPRAZOLE
  6. CHLOROTHIAZIDE. [Concomitant]
     Active Substance: CHLOROTHIAZIDE
  7. METOLAZONE. [Concomitant]
     Active Substance: METOLAZONE
  8. POTASSIUM CHLORIDE. [Concomitant]
     Active Substance: POTASSIUM CHLORIDE
  9. SOTALOL. [Concomitant]
     Active Substance: SOTALOL
  10. NORETHINDRONE. [Concomitant]
     Active Substance: NORETHINDRONE
  11. SILDENAFIL. [Concomitant]
     Active Substance: SILDENAFIL
  12. MAG64 [Concomitant]
     Active Substance: CALCIUM CHLORIDE\MAGNESIUM CHLORIDE
  13. BUMETANIDE. [Concomitant]
     Active Substance: BUMETANIDE
  14. SPIRONOLACTONE. [Concomitant]
     Active Substance: SPIRONOLACTONE
  15. NYSTATIN. [Concomitant]
     Active Substance: NYSTATIN

REACTIONS (3)
  - Cardiac failure [Fatal]
  - Cardiac disorder [Not Recovered/Not Resolved]
  - Product administration error [Recovered/Resolved]
